FAERS Safety Report 23060652 (Version 10)
Quarter: 2025Q3

REPORT INFORMATION
  Report Type: Spontaneous
  Country: US (occurrence: US)
  Receive Date: 20231012
  Receipt Date: 20250807
  Transmission Date: 20251020
  Serious: Yes (Other)
  Sender: PFIZER
  Company Number: US-PFIZER INC-PV202300165668

PATIENT
  Age: 78 Year
  Sex: Female

DRUGS (2)
  1. IBRANCE [Suspect]
     Active Substance: PALBOCICLIB
  2. IBRANCE [Suspect]
     Active Substance: PALBOCICLIB
     Dates: end: 202507

REACTIONS (15)
  - Pneumothorax [Unknown]
  - Second primary malignancy [Unknown]
  - Lung neoplasm malignant [Unknown]
  - Cataract [Unknown]
  - Nausea [Recovered/Resolved]
  - Flatulence [Unknown]
  - Abdominal pain upper [Unknown]
  - Back pain [Unknown]
  - Alopecia [Recovering/Resolving]
  - White blood cell count decreased [Unknown]
  - Fatigue [Unknown]
  - Dry eye [Unknown]
  - Nasopharyngitis [Unknown]
  - Cough [Not Recovered/Not Resolved]
  - Rhinorrhoea [Not Recovered/Not Resolved]

NARRATIVE: CASE EVENT DATE: 20240101
